FAERS Safety Report 15803335 (Version 1)
Quarter: 2019Q1

REPORT INFORMATION
  Report Type: Spontaneous
  Country: IT (occurrence: IT)
  Receive Date: 20190109
  Receipt Date: 20190109
  Transmission Date: 20190417
  Serious: Yes (Other)
  Sender: FDA-Public Use
  Company Number: IT-BRACCO-2018IT06782

PATIENT
  Age: 29 Year
  Sex: Female

DRUGS (1)
  1. IOPAMIRO [Suspect]
     Active Substance: IOPAMIDOL
     Indication: INVESTIGATION
     Dosage: 115 ML, SINGLE
     Route: 042
     Dates: start: 20181228, end: 20181228

REACTIONS (1)
  - Dermatitis bullous [Unknown]

NARRATIVE: CASE EVENT DATE: 20181228
